FAERS Safety Report 13370024 (Version 1)
Quarter: 2017Q1

REPORT INFORMATION
  Report Type: Other
  Country: JP (occurrence: JP)
  Receive Date: 20170324
  Receipt Date: 20170324
  Transmission Date: 20170429
  Serious: Yes (Hospitalization, Other)
  Sender: FDA-Public Use
  Company Number: JP-CELLTRION INC.-2016JP009078

PATIENT

DRUGS (10)
  1. PREDONINE [Concomitant]
     Active Substance: PREDNISOLONE
     Dosage: 5MG,DAY
     Route: 065
     Dates: start: 20161007
  2. INFLIXIMAB BS FOR I.V. INFUSION100 MG [NK] [Suspect]
     Active Substance: INFLIXIMAB
     Indication: COLITIS ULCERATIVE
     Dosage: 340 MG/BODY/DAY
     Route: 042
     Dates: start: 20160428, end: 20160428
  3. INFLIXIMAB BS FOR I.V. INFUSION100 MG [NK] [Suspect]
     Active Substance: INFLIXIMAB
     Dosage: 340 MG/BODY/DAY
     Route: 042
     Dates: start: 20161216, end: 20161216
  4. INFLIXIMAB BS FOR I.V. INFUSION100 MG [NK] [Suspect]
     Active Substance: INFLIXIMAB
     Dosage: 340 MG/BODY/DAY
     Route: 042
     Dates: start: 20160805, end: 20160805
  5. INFLIXIMAB BS FOR I.V. INFUSION100 MG [NK] [Suspect]
     Active Substance: INFLIXIMAB
     Dosage: 340 MG/BODY/DAY
     Route: 042
     Dates: start: 20161028, end: 20161028
  6. ASACOL [Concomitant]
     Active Substance: MESALAMINE
     Indication: COLITIS ULCERATIVE
     Dosage: 3600 MG, DAILY
     Dates: start: 201111
  7. INFLIXIMAB BS FOR I.V. INFUSION100 MG [NK] [Suspect]
     Active Substance: INFLIXIMAB
     Dosage: 340 MG/BODY/DAY
     Route: 042
     Dates: start: 20160513, end: 20160513
  8. INFLIXIMAB BS FOR I.V. INFUSION100 MG [NK] [Suspect]
     Active Substance: INFLIXIMAB
     Dosage: 340 MG/BODY/DAY
     Route: 042
     Dates: start: 20160610, end: 20160610
  9. PREDONINE [Concomitant]
     Active Substance: PREDNISOLONE
     Indication: COLITIS ULCERATIVE
     Dosage: 7.5 MG, DAILY
     Route: 065
     Dates: start: 20160517
  10. ELENTAL [Concomitant]
     Active Substance: AMINO ACIDS\CARBOHYDRATES\MINERALS\SOYBEAN OIL\VITAMINS
     Indication: COLITIS ULCERATIVE
     Dosage: 160 G, DAILY
     Dates: start: 20160425

REACTIONS (2)
  - Parotitis [Recovered/Resolved]
  - Condition aggravated [Unknown]

NARRATIVE: CASE EVENT DATE: 20160911
